FAERS Safety Report 6124175-1 (Version None)
Quarter: 2009Q1

REPORT INFORMATION
  Report Type: 
  Country: None (occurrence: None)
  Receive Date: 20090317
  Receipt Date: 20090304
  Transmission Date: 20090719
  Serious: Yes (Hospitalization)
  Sender: FDA-Public Use
  Company Number: 231296K09USA

PATIENT
  Age: 54 Year
  Sex: Female

DRUGS (2)
  1. REBIF [Suspect]
     Indication: MULTIPLE SCLEROSIS
     Dosage: 44 MCG, 3 IN 1 WEEKS, SUBCUTANEOUS
     Route: 058
     Dates: start: 20071119, end: 20090101
  2. FAMPRIDINE (FAMPRIDINE) [Concomitant]

REACTIONS (9)
  - ASTHENIA [None]
  - BLOOD SODIUM DECREASED [None]
  - CHILLS [None]
  - HYPERHIDROSIS [None]
  - HYPOPHAGIA [None]
  - INCOHERENT [None]
  - MENTAL IMPAIRMENT [None]
  - PAIN [None]
  - VOMITING [None]
